FAERS Safety Report 12293461 (Version 8)
Quarter: 2017Q3

REPORT INFORMATION
  Report Type: Report from Study
  Country: CO (occurrence: CO)
  Receive Date: 20160421
  Receipt Date: 20170904
  Transmission Date: 20171127
  Serious: Yes (Life-Threatening, Hospitalization, Other)
  Sender: FDA-Public Use
  Company Number: PHHY2016CO053804

PATIENT
  Sex: Female
  Weight: 70 kg

DRUGS (3)
  1. LEVOTHYROXINE. [Concomitant]
     Active Substance: LEVOTHYROXINE
     Indication: THYROID DISORDER
     Dosage: UNK
     Route: 065
  2. METFORMIN [Concomitant]
     Active Substance: METFORMIN HYDROCHLORIDE
     Indication: DIABETES MELLITUS
     Dosage: UNK
     Route: 065
  3. SANDOSTATIN LAR DEPOT [Suspect]
     Active Substance: OCTREOTIDE ACETATE
     Indication: ACROMEGALY
     Dosage: 20 MG, QMO
     Route: 030
     Dates: start: 20121201, end: 201703

REACTIONS (11)
  - Feeling abnormal [Unknown]
  - Inflammation [Unknown]
  - Eye inflammation [Unknown]
  - Headache [Unknown]
  - Asthenia [Unknown]
  - Cheilitis [Unknown]
  - General physical health deterioration [Unknown]
  - Vomiting [Unknown]
  - Blood glucose increased [Unknown]
  - Nasal inflammation [Unknown]
  - Blindness [Unknown]
